FAERS Safety Report 12214961 (Version 1)
Quarter: 2016Q1

REPORT INFORMATION
  Report Type: Spontaneous
  Country: US (occurrence: US)
  Receive Date: 20160328
  Receipt Date: 20160328
  Transmission Date: 20160526
  Serious: Yes (Other)
  Sender: FDA-Public Use
  Company Number: US-JAZZ-2015-US-012994

PATIENT
  Sex: Female

DRUGS (3)
  1. CLOZAPINE USP, ODT [Suspect]
     Active Substance: CLOZAPINE
     Indication: PRODUCT USED FOR UNKNOWN INDICATION
     Dosage: UNK MG, QD
     Route: 048
  2. LATUDA [Suspect]
     Active Substance: LURASIDONE HYDROCHLORIDE
     Indication: BIPOLAR DISORDER
  3. ALCOHOL. [Suspect]
     Active Substance: ALCOHOL

REACTIONS (3)
  - Suicidal ideation [Unknown]
  - Labelled drug-disease interaction medication error [Unknown]
  - Abnormal behaviour [Unknown]
